FAERS Safety Report 23800633 (Version 1)
Quarter: 2024Q2

REPORT INFORMATION
  Report Type: Report from Study
  Country: PH (occurrence: PH)
  Receive Date: 20240430
  Receipt Date: 20240430
  Transmission Date: 20240716
  Serious: Yes (Life-Threatening, Hospitalization, Other)
  Sender: FDA-Public Use
  Company Number: PH-002147023-NVSC2024PH086235

PATIENT
  Sex: Female

DRUGS (15)
  1. TRILEPTAL [Suspect]
     Active Substance: OXCARBAZEPINE
     Indication: Product used for unknown indication
     Dosage: 3 ML, (2X A DAY)
     Route: 065
     Dates: start: 20240217, end: 20240305
  2. VALPROS [Concomitant]
     Indication: Product used for unknown indication
     Dosage: 4 ML, BID (2X A DAY)
     Route: 065
     Dates: start: 202209
  3. IVETRA [Concomitant]
     Indication: Product used for unknown indication
     Dosage: 2.5 UNK, BID (2X A DAY)
     Route: 065
     Dates: start: 202311
  4. CLOBETASOL [Concomitant]
     Active Substance: CLOBETASOL
     Indication: Local anaesthesia
     Dosage: UNK
     Route: 065
  5. MUPIROCIN [Concomitant]
     Active Substance: MUPIROCIN
     Indication: Local anaesthesia
     Dosage: UNK
     Route: 065
  6. ACETAMINOPHEN [Concomitant]
     Active Substance: ACETAMINOPHEN
     Indication: Product used for unknown indication
     Dosage: UNK
     Route: 065
  7. CEFUROXIME [Concomitant]
     Active Substance: CEFUROXIME
     Indication: Product used for unknown indication
     Dosage: UNK
     Route: 065
  8. ALBUTEROL [Concomitant]
     Active Substance: ALBUTEROL
     Indication: Product used for unknown indication
     Dosage: UNK
     Route: 065
  9. CITIRIZINE [Concomitant]
     Indication: Product used for unknown indication
     Dosage: UNK
     Route: 065
  10. DIAZEPAM [Concomitant]
     Active Substance: DIAZEPAM
     Indication: Product used for unknown indication
     Dosage: UNK
     Route: 065
  11. HYDROCORTISONE [Concomitant]
     Active Substance: HYDROCORTISONE
     Indication: Product used for unknown indication
     Dosage: UNK
     Route: 065
  12. BENZYDAMINE [Concomitant]
     Active Substance: BENZYDAMINE
     Indication: Product used for unknown indication
     Dosage: UNK
     Route: 065
  13. TOBRADEX [Concomitant]
     Active Substance: DEXAMETHASONE\TOBRAMYCIN
     Indication: Product used for unknown indication
     Dosage: UNK (DROPS)
     Route: 065
  14. D5LRS [Concomitant]
     Indication: Product used for unknown indication
     Dosage: UNK
     Route: 065
  15. LEVETIRACETAM [Concomitant]
     Active Substance: LEVETIRACETAM
     Indication: Product used for unknown indication
     Dosage: UNK
     Route: 065

REACTIONS (13)
  - Pyrexia [Recovered/Resolved]
  - Conjunctivitis [Unknown]
  - Visual impairment [Recovered/Resolved]
  - Feeding disorder [Recovered/Resolved]
  - Rash [Recovered/Resolved]
  - Erythema [Unknown]
  - Skin exfoliation [Unknown]
  - Skin fissures [Unknown]
  - Skin discolouration [Unknown]
  - Blister [Unknown]
  - Stevens-Johnson syndrome [Unknown]
  - Measles [Unknown]
  - Hypersensitivity [Unknown]
